FAERS Safety Report 16880764 (Version 2)
Quarter: 2020Q3

REPORT INFORMATION
  Report Type: Spontaneous
  Country: US (occurrence: US)
  Receive Date: 20191003
  Receipt Date: 20200803
  Transmission Date: 20201102
  Serious: No
  Sender: FDA-Public Use
  Company Number: US-PFIZER INC-2019421730

PATIENT
  Age: 14 Year
  Sex: Male

DRUGS (1)
  1. EUCRISA [Suspect]
     Active Substance: CRISABOROLE
     Indication: DERMATITIS ATOPIC
     Dosage: UNK, 2X/DAY (APPLY TO AFFECTED AREA, AS NEEDED AS DIRECTED)
     Route: 061

REACTIONS (2)
  - Vision blurred [Unknown]
  - Sinus disorder [Unknown]
